FAERS Safety Report 5888767-7 (Version None)
Quarter: 2008Q3

REPORT INFORMATION
  Report Type: 
  Country: None (occurrence: None)
  Receive Date: 20080917
  Receipt Date: 20080917
  Transmission Date: 20090109
  Serious: Yes (Disabling)
  Sender: FDA-Public Use
  Company Number: None

PATIENT
  Age: 63 Year
  Sex: Female
  Weight: 104.3273 kg

DRUGS (3)
  1. COREG CR [Suspect]
     Indication: ASTHMA
     Dosage: 10MG 1XDAILY  (DURATION: 1 YR 1 MO)
  2. LIPITOR [Concomitant]
  3. ASPIRIN [Concomitant]

REACTIONS (2)
  - CHRONIC OBSTRUCTIVE PULMONARY DISEASE [None]
  - CONTRAINDICATION TO MEDICAL TREATMENT [None]
